FAERS Safety Report 4537232-8 (Version None)
Quarter: 2004Q4

REPORT INFORMATION
  Report Type: 
  Country: None (occurrence: None)
  Receive Date: 20041223
  Receipt Date: 20040621
  Transmission Date: 20050328
  Serious: Yes (Other)
  Sender: FDA-Public Use
  Company Number: PHEH2004US06798

PATIENT

DRUGS (1)
  1. FEMARA [Suspect]
     Dosage: 2.5 MG, QD
     Dates: start: 20040401

REACTIONS (1)
  - CARDIAC FAILURE [None]
